FAERS Safety Report 11225754 (Version 1)
Quarter: 2015Q2

REPORT INFORMATION
  Report Type: Spontaneous
  Country: NL (occurrence: NL)
  Receive Date: 20150629
  Receipt Date: 20150629
  Transmission Date: 20150821
  Serious: Yes (Hospitalization)
  Sender: FDA-Public Use
  Company Number: NL-TEVA-573703ISR

PATIENT
  Age: 36 Year
  Sex: Male

DRUGS (3)
  1. LACTULOSE STROOP 670MG/ML (500MG/G) [Concomitant]
     Dosage: ADDITIONAL INFORMATION: 20 ML PER DAY.
     Dates: start: 20150510, end: 20150518
  2. DICLOFENAC-NATRIUM TABLET MSR 50MG [Concomitant]
     Dosage: 150 MILLIGRAM DAILY; 3 TIMES DAILY ONE PIECE
     Route: 048
     Dates: start: 20150506, end: 20150607
  3. IBUPROFEN TABLET 400MG [Suspect]
     Active Substance: IBUPROFEN
     Indication: BACK DISORDER
     Dosage: 1200 MILLIGRAM DAILY; 3 TIMES DAILY ONE PIECE
     Route: 048
     Dates: start: 20150507, end: 20150522

REACTIONS (1)
  - Cutaneous vasculitis [Recovered/Resolved]

NARRATIVE: CASE EVENT DATE: 20150513
